FAERS Safety Report 5413781-5 (Version None)
Quarter: 2007Q3

REPORT INFORMATION
  Report Type: 
  Country: None (occurrence: None)
  Receive Date: 20070810
  Receipt Date: 20070808
  Transmission Date: 20080115
  Serious: Yes (Death, Other)
  Sender: FDA-Public Use
  Company Number: 056-C5013-07030316

PATIENT
  Age: 76 Year

DRUGS (3)
  1. CC-5013 (LENALIDOMIDE) (CAPSLES) [Suspect]
     Indication: MULTIPLE MYELOMA
     Dosage: 25 MG, 1 IN 1 D, ORAL; 10 MG, 1 IN1  D, ORAL
     Route: 048
     Dates: end: 20070207
  2. CC-5013 (LENALIDOMIDE) (CAPSLES) [Suspect]
     Indication: MULTIPLE MYELOMA
     Dosage: 25 MG, 1 IN 1 D, ORAL; 10 MG, 1 IN1  D, ORAL
     Route: 048
     Dates: start: 20060906
  3. DEXAMETHASONE TAB [Suspect]
     Indication: MULTIPLE MYELOMA
     Dosage: 20 MG, PER ORAL
     Route: 048
     Dates: start: 20060901, end: 20070201

REACTIONS (6)
  - MULTI-ORGAN FAILURE [None]
  - NO THERAPEUTIC RESPONSE [None]
  - PANCYTOPENIA [None]
  - RENAL IMPAIRMENT [None]
  - SEPTIC SHOCK [None]
  - URINARY TRACT INFECTION [None]
